FAERS Safety Report 13522708 (Version 2)
Quarter: 2017Q2

REPORT INFORMATION
  Report Type: Report from Study
  Country: US (occurrence: US)
  Receive Date: 20170508
  Receipt Date: 20170609
  Transmission Date: 20170830
  Serious: Yes (Hospitalization)
  Sender: FDA-Public Use
  Company Number: US-JNJFOC-20170504476

PATIENT
  Age: 68 Year
  Sex: Male

DRUGS (13)
  1. LIPITOR [Concomitant]
     Active Substance: ATORVASTATIN CALCIUM
  2. HYDROXYZINE HYDROCHLORIDE. [Concomitant]
     Active Substance: HYDROXYZINE HYDROCHLORIDE
  3. ATARAX [Concomitant]
     Active Substance: HYDROXYZINE HYDROCHLORIDE
  4. AXERT [Concomitant]
     Active Substance: ALMOTRIPTAN MALATE
  5. LOTRISONE [Concomitant]
     Active Substance: BETAMETHASONE DIPROPIONATE\CLOTRIMAZOLE
  6. BRILINTA [Concomitant]
     Active Substance: TICAGRELOR
  7. HYOSCYAMINE. [Concomitant]
     Active Substance: HYOSCYAMINE
  8. BOTOX [Concomitant]
     Active Substance: ONABOTULINUMTOXINA
  9. NEXIUM [Concomitant]
     Active Substance: ESOMEPRAZOLE MAGNESIUM
  10. ASPIRIN. [Concomitant]
     Active Substance: ASPIRIN
  11. IMBRUVICA [Suspect]
     Active Substance: IBRUTINIB
     Indication: CHRONIC LYMPHOCYTIC LEUKAEMIA RECURRENT
     Route: 048
     Dates: start: 20170227
  12. LISINOPRIL. [Concomitant]
     Active Substance: LISINOPRIL
  13. ATIVAN [Concomitant]
     Active Substance: LORAZEPAM

REACTIONS (2)
  - Coronary artery occlusion [Recovered/Resolved]
  - Myocardial infarction [Recovered/Resolved]

NARRATIVE: CASE EVENT DATE: 201705
